FAERS Safety Report 11026436 (Version 1)
Quarter: 2015Q2

REPORT INFORMATION
  Report Type: Report from Study
  Country: US (occurrence: US)
  Receive Date: 20150414
  Receipt Date: 20150414
  Transmission Date: 20150821
  Serious: Yes (Other)
  Sender: FDA-Public Use
  Company Number: US-ABBVIE-15K-163-1374036-00

PATIENT
  Sex: Female
  Weight: 49.03 kg

DRUGS (2)
  1. AZO [Concomitant]
     Active Substance: PHENAZOPYRIDINE HYDROCHLORIDE
     Indication: PRODUCT USED FOR UNKNOWN INDICATION
  2. HUMIRA [Suspect]
     Active Substance: ADALIMUMAB
     Indication: RHEUMATOID ARTHRITIS
     Route: 058
     Dates: start: 2005, end: 2008

REACTIONS (4)
  - Arthritis [Recovering/Resolving]
  - Arthralgia [Recovering/Resolving]
  - Fall [Recovered/Resolved]
  - Chondropathy [Recovering/Resolving]

NARRATIVE: CASE EVENT DATE: 2010
